FAERS Safety Report 10194053 (Version 1)
Quarter: 2014Q2

REPORT INFORMATION
  Report Type: Spontaneous
  Country: US (occurrence: US)
  Receive Date: 20140524
  Receipt Date: 20140524
  Transmission Date: 20141212
  Serious: No
  Sender: FDA-Public Use
  Company Number: US-SANOFI-AVENTIS-2013SA065141

PATIENT
  Age: 43 Year
  Sex: Female

DRUGS (3)
  1. SOLOSTAR [Suspect]
     Indication: TYPE 2 DIABETES MELLITUS
     Dates: start: 20120813
  2. LANTUS SOLOSTAR [Suspect]
     Indication: TYPE 2 DIABETES MELLITUS
     Dosage: DOSE:20 UNIT(S)
     Route: 051
     Dates: start: 20120813
  3. PREDNISONE [Suspect]
     Indication: DERMATITIS ALLERGIC

REACTIONS (4)
  - Fall [Unknown]
  - Joint injury [Unknown]
  - Limb injury [Unknown]
  - Blood glucose increased [Unknown]
